FAERS Safety Report 19062205 (Version 1)
Quarter: 2021Q1

REPORT INFORMATION
  Report Type: Report from Study
  Country: CO (occurrence: CO)
  Receive Date: 20210326
  Receipt Date: 20210326
  Transmission Date: 20210420
  Serious: Yes (Other)
  Sender: FDA-Public Use
  Company Number: CO-AMGEN-COLSL2020109227

PATIENT
  Age: 60 Year
  Sex: Male

DRUGS (1)
  1. PROLIA [Suspect]
     Active Substance: DENOSUMAB
     Indication: OSTEOPOROSIS
     Dosage: 60 MILLIGRAM, Q6MO
     Route: 058
     Dates: start: 20160224, end: 20200809

REACTIONS (2)
  - Immunosuppression [Not Recovered/Not Resolved]
  - Tooth extraction [Recovering/Resolving]

NARRATIVE: CASE EVENT DATE: 20210305
